FAERS Safety Report 7167554-6 (Version None)
Quarter: 2010Q4

REPORT INFORMATION
  Report Type: 
  Country: None (occurrence: None)
  Receive Date: 20101216
  Receipt Date: 20100329
  Transmission Date: 20110411
  Serious: No
  Sender: FDA-Public Use
  Company Number: A0852338A

PATIENT
  Age: 79 Year
  Sex: Male

DRUGS (3)
  1. NICOTINE POLACRILEX [Suspect]
  2. NICOTINE POLACRILEX [Suspect]
  3. NICOTINE POLACRILEX [Suspect]

REACTIONS (1)
  - DRUG INEFFECTIVE [None]
